FAERS Safety Report 15540009 (Version 6)
Quarter: 2019Q3

REPORT INFORMATION
  Report Type: Spontaneous
  Country: CA (occurrence: CA)
  Receive Date: 20181023
  Receipt Date: 20190702
  Transmission Date: 20191004
  Serious: Yes (Other)
  Sender: FDA-Public Use
  Company Number: CA-ORION CORPORATION ORION PHARMA-TREX2018-2975

PATIENT
  Age: 74 Year
  Sex: Female
  Weight: 80 kg

DRUGS (5)
  1. PLAQUENIL [Concomitant]
     Active Substance: HYDROXYCHLOROQUINE SULFATE
     Indication: RHEUMATOID ARTHRITIS
     Route: 065
  2. ISONIAZID. [Concomitant]
     Active Substance: ISONIAZID
     Indication: LATENT TUBERCULOSIS
     Route: 065
     Dates: start: 20181121, end: 201812
  3. VITAMIN B5 [Concomitant]
     Active Substance: PANTOTHENIC ACID
     Route: 065
  4. METHOTREXATE (TRADE NAME UNKNOWN) [Suspect]
     Active Substance: METHOTREXATE
     Route: 030
     Dates: start: 20170911, end: 201810
  5. METHOTREXATE (TRADE NAME UNKNOWN) [Suspect]
     Active Substance: METHOTREXATE
     Indication: RHEUMATOID ARTHRITIS
     Route: 058
     Dates: start: 20170911, end: 201810

REACTIONS (4)
  - Dental caries [Unknown]
  - Quality of life decreased [Unknown]
  - Rheumatoid arthritis [Unknown]
  - Interstitial lung disease [Not Recovered/Not Resolved]
